FAERS Safety Report 7733316-1 (Version None)
Quarter: 2011Q3

REPORT INFORMATION
  Report Type: 
  Country: None (occurrence: None)
  Receive Date: 20110907
  Receipt Date: 20110826
  Transmission Date: 20111222
  Serious: Yes (Hospitalization, Other)
  Sender: FDA-Public Use
  Company Number: US-BAYER-2011-011242

PATIENT
  Age: 37 Year
  Sex: Female
  Weight: 99.773 kg

DRUGS (11)
  1. FEXOFENADINE HCL AND PSEUDOEPHEDRINE HCL [Concomitant]
     Dosage: UNK
     Dates: start: 20030801
  2. YAZ [Suspect]
     Dosage: UNK
     Dates: start: 20020201, end: 20090301
  3. YASMIN [Suspect]
     Indication: PRODUCT USED FOR UNKNOWN INDICATION
     Dosage: UNK
     Dates: start: 20020201, end: 20090301
  4. METAXALONE [Concomitant]
     Indication: FIBROMYALGIA
     Dosage: UNK
     Dates: start: 20050101
  5. EFFEXOR XR [Concomitant]
     Indication: DEPRESSION
     Dosage: UNK
     Dates: start: 20030822
  6. PREVACID [Concomitant]
     Dosage: UNK
     Dates: start: 20030822
  7. HYOSCAMINE [Concomitant]
     Dosage: UNK
     Dates: start: 20030822
  8. DROSPIRENONE AND ETHINYL ESTRADIOL [Suspect]
     Indication: PRODUCT USED FOR UNKNOWN INDICATION
     Dosage: UNK
     Dates: start: 20020201, end: 20090301
  9. MYLANTA [Concomitant]
     Indication: ABDOMINAL PAIN UPPER
     Dosage: UNK
  10. CELEBREX [Concomitant]
     Indication: FIBROMYALGIA
     Dosage: UNK
     Dates: start: 20050101
  11. PRILOSEC [Concomitant]
     Indication: ABDOMINAL PAIN UPPER
     Dosage: UNK
     Dates: start: 20030403

REACTIONS (9)
  - DEEP VEIN THROMBOSIS [None]
  - CHOLECYSTITIS CHRONIC [None]
  - PULMONARY EMBOLISM [None]
  - PAIN [None]
  - GENERAL PHYSICAL HEALTH DETERIORATION [None]
  - GALLBLADDER DISORDER [None]
  - EMOTIONAL DISTRESS [None]
  - ANXIETY [None]
  - CHOLELITHIASIS [None]
